FAERS Safety Report 4704411-6 (Version None)
Quarter: 2005Q2

REPORT INFORMATION
  Report Type: 
  Country: None (occurrence: None)
  Receive Date: 20050630
  Receipt Date: 20050620
  Transmission Date: 20051028
  Serious: Yes (Hospitalization)
  Sender: FDA-Public Use
  Company Number: FR-GLAXOSMITHKLINE-B0385332A

PATIENT
  Age: 88 Year
  Sex: Female

DRUGS (12)
  1. AUGMENTIN [Suspect]
     Indication: ESCHERICHIA URINARY TRACT INFECTION
     Dosage: 1G TWICE PER DAY
     Route: 048
     Dates: start: 20050528, end: 20050606
  2. PREVISCAN [Suspect]
     Indication: ILL-DEFINED DISORDER
     Route: 048
     Dates: end: 20050603
  3. ALPRAZOLAM [Concomitant]
     Indication: ILL-DEFINED DISORDER
     Dosage: .25MG TWICE PER DAY
  4. DIGOXIN [Concomitant]
     Indication: ILL-DEFINED DISORDER
  5. FONZYLANE [Concomitant]
     Indication: ILL-DEFINED DISORDER
  6. LASIX [Concomitant]
     Indication: ILL-DEFINED DISORDER
  7. MOTILIUM [Concomitant]
     Indication: ILL-DEFINED DISORDER
  8. FORLAX [Concomitant]
     Indication: ILL-DEFINED DISORDER
  9. GABACET [Concomitant]
     Indication: ILL-DEFINED DISORDER
  10. COVERSYL [Concomitant]
     Indication: ILL-DEFINED DISORDER
     Route: 065
  11. NORSET [Concomitant]
     Indication: ILL-DEFINED DISORDER
     Route: 065
  12. BORIC ACID EYE WASHES [Concomitant]
     Route: 047

REACTIONS (3)
  - DRUG INTERACTION [None]
  - FALL [None]
  - INTERNATIONAL NORMALISED RATIO INCREASED [None]
